FAERS Safety Report 17731509 (Version 2)
Quarter: 2020Q2

REPORT INFORMATION
  Report Type: Spontaneous
  Country: NL (occurrence: NL)
  Receive Date: 20200430
  Receipt Date: 20200513
  Transmission Date: 20200714
  Serious: Yes (Death)
  Sender: FDA-Public Use
  Company Number: NL-TEVA-2020-NL-1227974

PATIENT
  Sex: Female
  Weight: 82 kg

DRUGS (1)
  1. NITROFURANTOINE [Suspect]
     Active Substance: NITROFURANTOIN
     Indication: CYSTITIS
     Dosage: 200 MILLIGRAM DAILY;
     Dates: start: 20200328, end: 20200402

REACTIONS (1)
  - Diarrhoea haemorrhagic [Fatal]
